FAERS Safety Report 19089253 (Version 3)
Quarter: 2021Q4

REPORT INFORMATION
  Report Type: Report from Study
  Country: KE (occurrence: KE)
  Receive Date: 20210403
  Receipt Date: 20211228
  Transmission Date: 20220303
  Serious: Yes (Life-Threatening, Hospitalization, Other)
  Sender: FDA-Public Use
  Company Number: KE-CIPLA LTD.-2021KE02468

PATIENT

DRUGS (8)
  1. LOPINAVIR\RITONAVIR [Suspect]
     Active Substance: LOPINAVIR\RITONAVIR
     Indication: HIV infection
     Dosage: 3 DOSAGE FORM, BID, 120MG/30MG BID DAILY
     Route: 048
     Dates: start: 20151103, end: 20161220
  2. ARTEMETHER\LUMEFANTRINE [Concomitant]
     Active Substance: ARTEMETHER\LUMEFANTRINE
     Indication: Product used for unknown indication
     Dosage: UNK
     Route: 065
     Dates: start: 20160224, end: 20160226
  3. ARTESUNATE [Concomitant]
     Active Substance: ARTESUNATE
     Indication: Product used for unknown indication
     Dosage: 29 MG
     Route: 065
     Dates: start: 20160222, end: 20160224
  4. CEFTRIAXONE [Concomitant]
     Active Substance: CEFTRIAXONE
     Indication: Product used for unknown indication
     Dosage: 96 MG
     Route: 065
     Dates: start: 20160222, end: 20160226
  5. AMOXICILLIN [Concomitant]
     Active Substance: AMOXICILLIN
     Indication: Product used for unknown indication
     Dosage: UNK
     Route: 065
     Dates: start: 20151105
  6. ACETAMINOPHEN [Concomitant]
     Active Substance: ACETAMINOPHEN
     Indication: Product used for unknown indication
     Dosage: UNK
     Route: 065
     Dates: start: 20151105
  7. COTRIMOXAZOLE [Concomitant]
     Active Substance: SULFAMETHOXAZOLE\TRIMETHOPRIM
     Indication: Prophylaxis
     Dosage: UNK
     Route: 065
     Dates: start: 2015
  8. COTRIMOXAZOLE [Concomitant]
     Active Substance: SULFAMETHOXAZOLE\TRIMETHOPRIM
     Indication: Pneumocystis jirovecii pneumonia

REACTIONS (5)
  - Anaemia [Recovered/Resolved]
  - Infection [Recovered/Resolved]
  - Malaria [Recovered/Resolved]
  - Respiratory tract infection [Recovered/Resolved]
  - Platelet count decreased [Recovered/Resolved]

NARRATIVE: CASE EVENT DATE: 20160309
